FAERS Safety Report 4572187-1 (Version None)
Quarter: 2005Q1

REPORT INFORMATION
  Report Type: 
  Country: None (occurrence: None)
  Receive Date: 20050202
  Receipt Date: 20050111
  Transmission Date: 20050727
  Serious: No
  Sender: FDA-Public Use
  Company Number: USA050188037

PATIENT
  Sex: Male

DRUGS (1)
  1. CYMBALTA [Suspect]
     Indication: DEPRESSION
     Dosage: 60 M G

REACTIONS (3)
  - FATIGUE [None]
  - FEELING ABNORMAL [None]
  - HEPATIC ENZYME INCREASED [None]
